FAERS Safety Report 5425167-8 (Version None)
Quarter: 2007Q3

REPORT INFORMATION
  Report Type: 
  Country: None (occurrence: None)
  Receive Date: 20070824
  Receipt Date: 20070816
  Transmission Date: 20080115
  Serious: Yes (Hospitalization)
  Sender: FDA-Public Use
  Company Number: HQWYE658517AUG07

PATIENT
  Sex: Male

DRUGS (5)
  1. TORISEL [Suspect]
     Indication: RENAL CELL CARCINOMA STAGE UNSPECIFIED
     Route: 042
     Dates: start: 20070712, end: 20070726
  2. MILK OF MAGNESIA [Concomitant]
     Dosage: UNKNOWN
     Route: 065
  3. MEGACE [Concomitant]
     Dosage: UNKNOWN
     Route: 065
  4. OXYCONTIN [Concomitant]
     Indication: PAIN
     Dosage: UNKNOWN
     Route: 065
  5. DILAUDID [Concomitant]
     Indication: PAIN
     Dosage: UNKNOWN
     Route: 065

REACTIONS (1)
  - DEHYDRATION [None]
